FAERS Safety Report 7780486-5 (Version None)
Quarter: 2011Q3

REPORT INFORMATION
  Report Type: 
  Country: None (occurrence: None)
  Receive Date: 20110927
  Receipt Date: 20110801
  Transmission Date: 20111222
  Serious: No
  Sender: FDA-Public Use
  Company Number: US-GLAXOSMITHKLINE-A0939290A

PATIENT
  Age: 51 Year
  Sex: Male

DRUGS (9)
  1. NASONEX [Concomitant]
  2. CRESTOR [Concomitant]
  3. FISH OIL [Concomitant]
  4. NIACIN [Concomitant]
  5. LYRICA [Concomitant]
  6. PATANASE [Concomitant]
     Route: 045
  7. LAMICTAL [Suspect]
     Indication: NEURALGIA
     Dosage: 50MG PER DAY
     Route: 048
     Dates: start: 20110717
  8. ALLEGRA [Concomitant]
  9. BENICAR HCT [Concomitant]

REACTIONS (1)
  - RASH PRURITIC [None]
